FAERS Safety Report 4662733-1 (Version None)
Quarter: 2005Q2

REPORT INFORMATION
  Report Type: 
  Country: None (occurrence: None)
  Receive Date: 20050516
  Receipt Date: 20050510
  Transmission Date: 20051028
  Serious: Yes (Death, Hospitalization)
  Sender: FDA-Public Use
  Company Number: UG-GLAXOSMITHKLINE-B0380475A

PATIENT
  Age: 53 Year
  Sex: Female

DRUGS (4)
  1. LAMIVUDINE [Suspect]
     Indication: HIV INFECTION
     Route: 048
     Dates: start: 20040921, end: 20050414
  2. STAVUDINE [Suspect]
     Indication: HIV INFECTION
     Route: 048
     Dates: start: 20040921, end: 20050414
  3. TENOFOVIR [Suspect]
     Indication: HIV INFECTION
     Route: 048
     Dates: end: 20050414
  4. COTRIM [Concomitant]

REACTIONS (14)
  - ABDOMINAL DISCOMFORT [None]
  - BLOOD CHLORIDE DECREASED [None]
  - BLOOD CREATININE INCREASED [None]
  - BLOOD GLUCOSE DECREASED [None]
  - BLOOD POTASSIUM INCREASED [None]
  - BLOOD SODIUM DECREASED [None]
  - DYSPNOEA [None]
  - LACTIC ACIDOSIS [None]
  - MALAISE [None]
  - MITOCHONDRIAL CYTOPATHY [None]
  - PANCREATITIS [None]
  - RENAL FAILURE ACUTE [None]
  - SEPSIS [None]
  - URINE OUTPUT DECREASED [None]
